FAERS Safety Report 9461937 (Version 1)
Quarter: 2013Q3

REPORT INFORMATION
  Report Type: Spontaneous
  Country: US (occurrence: None)
  Receive Date: 20130815
  Receipt Date: 20130815
  Transmission Date: 20140515
  Serious: No
  Sender: FDA-Public Use
  Company Number: None

PATIENT
  Age: 36 Year
  Sex: Female

DRUGS (1)
  1. HUMIRA [Suspect]
     Indication: CROHN^S DISEASE
     Dosage: 40MG AS DIRECTED SQ
     Route: 058
     Dates: start: 20130807, end: 20130807

REACTIONS (3)
  - Pyrexia [None]
  - Back pain [None]
  - Joint swelling [None]
